FAERS Safety Report 8011061-5 (Version None)
Quarter: 2011Q4

REPORT INFORMATION
  Report Type: 
  Country: None (occurrence: None)
  Receive Date: 20111228
  Receipt Date: 20111213
  Transmission Date: 20120403
  Serious: Yes (Life-Threatening, Other)
  Sender: FDA-Public Use
  Company Number: TW-ROCHE-1025622

PATIENT
  Age: 61 Year
  Sex: Female

DRUGS (2)
  1. ALTEPLASE [Suspect]
     Indication: ISCHAEMIC STROKE
     Route: 042
  2. RAMIPRIL [Suspect]
     Indication: HYPERTENSION

REACTIONS (5)
  - ABDOMINAL DISCOMFORT [None]
  - LOSS OF CONSCIOUSNESS [None]
  - ANAPHYLACTOID SHOCK [None]
  - VOMITING [None]
  - NAUSEA [None]
